FAERS Safety Report 5789086-X (Version None)
Quarter: 2008Q2

REPORT INFORMATION
  Report Type: 
  Country: None (occurrence: None)
  Receive Date: 20080626
  Receipt Date: 20071213
  Transmission Date: 20081010
  Serious: No
  Sender: FDA-Public Use
  Company Number: US-ASTRAZENECA-2007UW28372

PATIENT
  Age: 62 Year
  Sex: Female
  Weight: 77.1 kg

DRUGS (3)
  1. PULMICORT FLEXHALER [Suspect]
     Dosage: TWO PUFFS
     Route: 055
  2. MANY MEDICATIONS [Concomitant]
  3. PULMICORT TURBULAHER [Concomitant]
     Route: 055

REACTIONS (4)
  - ASTHMA [None]
  - NO ADVERSE EVENT [None]
  - PRODUCTIVE COUGH [None]
  - WHEEZING [None]
